FAERS Safety Report 6659904-1 (Version None)
Quarter: 2010Q1

REPORT INFORMATION
  Report Type: 
  Country: None (occurrence: None)
  Receive Date: 20100330
  Receipt Date: 20100330
  Transmission Date: 20100710
  Serious: Yes (Other)
  Sender: FDA-Public Use
  Company Number: None

PATIENT
  Age: 8 Day
  Sex: Male
  Weight: 2.7 kg

DRUGS (6)
  1. SILDENAFIL 4.5 MG UNKNOWN [Suspect]
     Indication: PULMONARY ARTERIAL HYPERTENSION
     Dosage: 4.5 MG Q6 HOUR PO
     Route: 048
     Dates: start: 20090716, end: 20090721
  2. MORPHINE [Concomitant]
  3. FENANYL [Concomitant]
  4. ATRACURIUM BESYLATE [Concomitant]
  5. AMPICILLIN [Concomitant]
  6. FUROSEMIDE [Concomitant]

REACTIONS (5)
  - ABDOMINAL DISTENSION [None]
  - BILIARY TRACT DISORDER [None]
  - FLATULENCE [None]
  - HAEMATOCHEZIA [None]
  - UNEVALUABLE EVENT [None]
